FAERS Safety Report 6117033-X (Version None)
Quarter: 2009Q1

REPORT INFORMATION
  Report Type: 
  Country: None (occurrence: None)
  Receive Date: 20090314
  Receipt Date: 20090105
  Transmission Date: 20090719
  Serious: No
  Sender: FDA-Public Use
  Company Number: US-ABBOTT-09P-163-0495987-00

PATIENT
  Sex: Female
  Weight: 70.37 kg

DRUGS (7)
  1. HUMIRA [Suspect]
     Indication: RHEUMATOID ARTHRITIS
     Route: 058
     Dates: start: 20081101, end: 20081213
  2. HUMIRA [Suspect]
     Route: 058
     Dates: start: 20090103
  3. METHOTREXATE [Concomitant]
     Indication: RHEUMATOID ARTHRITIS
  4. PREDNISONE [Concomitant]
     Indication: RHEUMATOID ARTHRITIS
  5. LEUCOVORIN CALCIUM [Concomitant]
     Indication: DRUG USE FOR UNKNOWN INDICATION
  6. CELEBREX [Concomitant]
     Indication: INFLAMMATION
  7. CELEBREX [Concomitant]
     Indication: PAIN

REACTIONS (3)
  - BRONCHITIS [None]
  - HEADACHE [None]
  - HYPERSENSITIVITY [None]
